FAERS Safety Report 13159368 (Version 2)
Quarter: 2017Q1

REPORT INFORMATION
  Report Type: Spontaneous
  Country: PT (occurrence: DK)
  Receive Date: 20170127
  Receipt Date: 20170217
  Transmission Date: 20170428
  Serious: Yes (Hospitalization)
  Sender: FDA-Public Use
  Company Number: PT-SUNOVION-2017SUN000275

PATIENT

DRUGS (4)
  1. ZEBINIX [Suspect]
     Active Substance: ESLICARBAZEPINE ACETATE
     Dosage: 1200 MG+800 MG
     Route: 048
     Dates: start: 201301
  2. BRIVARACETAM [Concomitant]
     Active Substance: BRIVARACETAM
     Dosage: 25 MG, 2X / DAY
  3. ZEBINIX [Suspect]
     Active Substance: ESLICARBAZEPINE ACETATE
     Indication: EPILEPSY
     Dosage: 400+1200 MG
     Route: 048
     Dates: start: 201109
  4. LAMOTRIGIN [Concomitant]
     Active Substance: LAMOTRIGINE
     Dosage: 200 MG, 2X / DAY
     Route: 048

REACTIONS (6)
  - Drug dose titration not performed [Unknown]
  - C-reactive protein increased [Unknown]
  - Abdominal pain [Recovering/Resolving]
  - Overdose [Unknown]
  - Nephrolithiasis [Recovered/Resolved]
  - Inappropriate schedule of drug administration [Unknown]

NARRATIVE: CASE EVENT DATE: 201109
